FAERS Safety Report 19184088 (Version 1)
Quarter: 2021Q2

REPORT INFORMATION
  Report Type: Spontaneous
  Country: GB (occurrence: NO)
  Receive Date: 20210427
  Receipt Date: 20210427
  Transmission Date: 20210717
  Serious: Yes (Disabling, Other)
  Sender: FDA-Public Use
  Company Number: NO-ENDO PHARMACEUTICALS INC-2021-002625

PATIENT
  Age: 69 Year
  Sex: Male
  Weight: 80 kg

DRUGS (3)
  1. COZAAR COMP [Concomitant]
     Active Substance: HYDROCHLOROTHIAZIDE\LOSARTAN POTASSIUM
     Indication: PRODUCT USED FOR UNKNOWN INDICATION
     Dosage: UNK UNKNOWN, UNKNOWN
     Route: 065
     Dates: start: 2012
  2. FORTESTA [Suspect]
     Active Substance: TESTOSTERONE
     Indication: HORMONE LEVEL ABNORMAL
     Dosage: 3 MG, UNKNOWN
     Route: 003
     Dates: start: 201803
  3. FORTESTA [Suspect]
     Active Substance: TESTOSTERONE
     Dosage: 0.5 MG, UNKNOWN
     Route: 003

REACTIONS (7)
  - Testicular atrophy [Unknown]
  - Varicose vein [Unknown]
  - Sleep apnoea syndrome [Unknown]
  - Erectile dysfunction [Unknown]
  - Pruritus [Unknown]
  - Urinary retention [Recovered/Resolved with Sequelae]
  - Dysuria [Recovered/Resolved with Sequelae]

NARRATIVE: CASE EVENT DATE: 201804
